FAERS Safety Report 10080922 (Version 3)
Quarter: 2014Q2

REPORT INFORMATION
  Report Type: Spontaneous
  Country: DE (occurrence: DE)
  Receive Date: 20140416
  Receipt Date: 20140605
  Transmission Date: 20141212
  Serious: No
  Sender: FDA-Public Use
  Company Number: DE-ELI_LILLY_AND_COMPANY-DE201404003623

PATIENT
  Sex: Male

DRUGS (7)
  1. ADCIRCA [Suspect]
     Indication: PRODUCT USED FOR UNKNOWN INDICATION
     Dosage: 40 MG, QD
     Route: 048
  2. ASS [Concomitant]
     Dosage: 100 MG, QD
  3. ALDACTONE                          /00006201/ [Concomitant]
     Dosage: 25 (NO UNIT), QD
  4. NEBIVOLOL [Concomitant]
     Dosage: 1/2 PER DAY
  5. TORASEMID [Concomitant]
  6. LORZAAR [Concomitant]
     Dosage: UNK, QD
  7. SIMVASTATIN [Concomitant]
     Dosage: UNK, QD

REACTIONS (2)
  - Vision blurred [Not Recovered/Not Resolved]
  - Hypotension [Unknown]
